FAERS Safety Report 6023703-4 (Version None)
Quarter: 2008Q4

REPORT INFORMATION
  Report Type: 
  Country: None (occurrence: None)
  Receive Date: 20081226
  Receipt Date: 20081226
  Transmission Date: 20090506
  Serious: No
  Sender: FDA-Public Use
  Company Number: None

PATIENT
  Sex: Male
  Weight: 88.4514 kg

DRUGS (1)
  1. FLOMAX [Suspect]
     Indication: DYSURIA
     Dosage: 1 BM DAILY PO
     Route: 048

REACTIONS (2)
  - HEART RATE IRREGULAR [None]
  - INSOMNIA [None]
